FAERS Safety Report 7034396-1 (Version None)
Quarter: 2010Q4

REPORT INFORMATION
  Report Type: 
  Country: None (occurrence: None)
  Receive Date: 20101008
  Receipt Date: 20100927
  Transmission Date: 20110411
  Serious: Yes (Hospitalization, Other)
  Sender: FDA-Public Use
  Company Number: US-ELI_LILLY_AND_COMPANY-US201009007628

PATIENT
  Age: 53 Year
  Sex: Male

DRUGS (10)
  1. CYMBALTA [Suspect]
     Indication: DIABETIC NEUROPATHY
     Dosage: 30 MG, DAILY (1/D)
  2. PROTONIX [Concomitant]
  3. NEURONTIN [Concomitant]
  4. GLUCOPHAGE [Concomitant]
  5. METFORMIN [Concomitant]
  6. GLIPIZIDE [Concomitant]
  7. HYDROCODONE [Concomitant]
  8. IRON [Concomitant]
  9. ALPRAZOLAM [Concomitant]
     Indication: ANXIETY
     Dosage: 1 D/F, AS NEEDED
  10. OTHER I.V. SOLUTION ADDITIVES [Concomitant]

REACTIONS (7)
  - BLOOD COUNT ABNORMAL [None]
  - DIZZINESS [None]
  - DRUG EFFECT DECREASED [None]
  - HAEMATEMESIS [None]
  - HAEMATOCHEZIA [None]
  - HYPERGLYCAEMIA [None]
  - WEIGHT DECREASED [None]
